FAERS Safety Report 15274047 (Version 1)
Quarter: 2018Q3

REPORT INFORMATION
  Report Type: Report from Study
  Country: NL (occurrence: NL)
  Receive Date: 20180814
  Receipt Date: 20180814
  Transmission Date: 20181010
  Serious: Yes (Hospitalization, Other)
  Sender: FDA-Public Use
  Company Number: NL-AMGEN-NLDSL2018109366

PATIENT
  Age: 84 Year
  Sex: Female

DRUGS (3)
  1. INSULIN [Concomitant]
     Active Substance: INSULIN NOS
     Dosage: UNK
  2. XGEVA [Suspect]
     Active Substance: DENOSUMAB
     Indication: BREAST CANCER METASTATIC
     Dosage: Q4WK
     Route: 065
  3. INSULIN RAPID [Concomitant]
     Active Substance: INSULIN NOS

REACTIONS (9)
  - Vitamin D decreased [Unknown]
  - Hypocalcaemia [Unknown]
  - Blood parathyroid hormone increased [Unknown]
  - Cough [Recovering/Resolving]
  - Dyspnoea [Recovering/Resolving]
  - Haemoglobin decreased [Unknown]
  - General physical health deterioration [Unknown]
  - Delirium [Unknown]
  - Haematuria [Unknown]

NARRATIVE: CASE EVENT DATE: 2018
